FAERS Safety Report 15521839 (Version 1)
Quarter: 2018Q4

REPORT INFORMATION
  Report Type: Spontaneous
  Country: US (occurrence: US)
  Receive Date: 20181018
  Receipt Date: 20181018
  Transmission Date: 20190205
  Serious: No
  Sender: FDA-Public Use
  Company Number: None

PATIENT
  Age: 42 Year
  Sex: Female
  Weight: 58.5 kg

DRUGS (2)
  1. PROPOFOL. [Suspect]
     Active Substance: PROPOFOL
     Indication: ANAESTHESIA
     Route: 042
     Dates: start: 20181018, end: 20181018
  2. PROPOFOL. [Suspect]
     Active Substance: PROPOFOL
     Indication: ENDOSCOPY
     Route: 042
     Dates: start: 20181018, end: 20181018

REACTIONS (1)
  - Tinnitus [None]

NARRATIVE: CASE EVENT DATE: 20181018
